FAERS Safety Report 17569439 (Version 2)
Quarter: 2020Q2

REPORT INFORMATION
  Report Type: Report from Study
  Country: US (occurrence: US)
  Receive Date: 20200323
  Receipt Date: 20200406
  Transmission Date: 20200713
  Serious: Yes (Other)
  Sender: FDA-Public Use
  Company Number: US-BRISTOL-MYERS SQUIBB COMPANY-BMS-2019-117967

PATIENT
  Age: 64 Year
  Sex: Female
  Weight: 49.9 kg

DRUGS (1)
  1. ABATACEPT [Suspect]
     Active Substance: ABATACEPT
     Indication: RHEUMATOID ARTHRITIS
     Dosage: 125 MILLIGRAM, QWK
     Route: 058
     Dates: start: 2019

REACTIONS (5)
  - Pneumonia [Unknown]
  - Fracture [Unknown]
  - Arthralgia [Unknown]
  - Device material issue [Unknown]
  - Device malfunction [Unknown]

NARRATIVE: CASE EVENT DATE: 2019
